FAERS Safety Report 4874746-5 (Version None)
Quarter: 2006Q1

REPORT INFORMATION
  Report Type: 
  Country: None (occurrence: None)
  Receive Date: 20060105
  Receipt Date: 20060105
  Transmission Date: 20060701
  Serious: Yes (Other)
  Sender: FDA-Public Use
  Company Number: None

PATIENT
  Age: 38 Year
  Sex: Female
  Weight: 105.2345 kg

DRUGS (2)
  1. LEXIVA [Suspect]
     Dosage: 2 CAPS BID PO
     Route: 048
     Dates: start: 20051113, end: 20051211
  2. VINEAD (TENOFOVIR) 300 MG [Suspect]
     Dosage: 1 TAB QD PO
     Route: 048
     Dates: start: 20051127, end: 20051211

REACTIONS (3)
  - DRUG EXPOSURE DURING PREGNANCY [None]
  - DRUG INTERACTION [None]
  - ECTOPIC PREGNANCY [None]
